FAERS Safety Report 18764647 (Version 1)
Quarter: 2021Q1

REPORT INFORMATION
  Report Type: Spontaneous
  Country: US (occurrence: US)
  Receive Date: 20210120
  Receipt Date: 20210120
  Transmission Date: 20210419
  Serious: Yes (Other)
  Sender: FDA-Public Use
  Company Number: US-009507513-2101USA008838

PATIENT
  Age: 34 Year
  Sex: Male

DRUGS (1)
  1. KEYTRUDA [Suspect]
     Active Substance: PEMBROLIZUMAB
     Indication: COLON CANCER METASTATIC
     Dosage: UNK
     Dates: start: 20170828

REACTIONS (2)
  - Immune-mediated endocrinopathy [Unknown]
  - Muscle disorder [Unknown]

NARRATIVE: CASE EVENT DATE: 20171023
